FAERS Safety Report 8779684 (Version 3)
Quarter: 2012Q4

REPORT INFORMATION
  Report Type: Report from Study
  Country: IT (occurrence: IT)
  Receive Date: 20120911
  Receipt Date: 20121214
  Transmission Date: 20130627
  Serious: Yes (Hospitalization)
  Sender: FDA-Public Use
  Company Number: IT-EISAI INC-E7389-02715-CLI-IT

PATIENT
  Age: 55 Year
  Sex: Female
  Weight: 67 kg

DRUGS (7)
  1. E7389 (BOLD) [Suspect]
     Indication: NON-SMALL CELL LUNG CANCER
     Route: 041
     Dates: start: 20120613, end: 20120711
  2. GRANULOKINE [Concomitant]
     Indication: PROPHYLAXIS
     Dates: start: 20110804
  3. SERTRALINE [Concomitant]
     Indication: DEPRESSION
     Dates: start: 1997
  4. MORPHINE [Concomitant]
     Indication: DRY COUGH
     Dates: start: 2010
  5. MEGESTROL [Concomitant]
     Indication: ANOREXIA
     Dates: start: 20120531
  6. CHLORPROMAZINE HYDROCHLORIDE [Concomitant]
     Indication: DRY COUGH
     Dates: start: 20120424
  7. TETRACOSACTIDE ESACETATO [Concomitant]
     Indication: VOMITING PROPHYLAXIS
     Dates: start: 20111219

REACTIONS (3)
  - Pulmonary embolism [Recovered/Resolved with Sequelae]
  - Dyspnoea [Recovered/Resolved with Sequelae]
  - Cough [Recovered/Resolved with Sequelae]
